FAERS Safety Report 4822091-6 (Version None)
Quarter: 2005Q4

REPORT INFORMATION
  Report Type: 
  Country: None (occurrence: None)
  Receive Date: 20051103
  Receipt Date: 20051018
  Transmission Date: 20060501
  Serious: Yes (Hospitalization)
  Sender: FDA-Public Use
  Company Number: CA-2005-015525

PATIENT
  Age: 46 Year
  Sex: Male

DRUGS (7)
  1. BETASERON [Suspect]
     Indication: RELAPSING-REMITTING MULTIPLE SCLEROSIS
     Dosage: 8 MIU, EVERY 2D, SUBCUTANEOUS
     Route: 058
     Dates: start: 19980215
  2. DILANTIN [Concomitant]
  3. CLOBAZAM [Concomitant]
  4. MULTIPLE VITAMINS (RETINOL) [Concomitant]
  5. HERBAL OIL NOS (PRIME ROSE OIL) [Concomitant]
  6. SIMVASTATIN [Concomitant]
  7. MIRTAZAPINE [Concomitant]

REACTIONS (7)
  - DIFFICULTY IN WALKING [None]
  - INJECTION SITE ABSCESS [None]
  - INJECTION SITE HAEMORRHAGE [None]
  - INJECTION SITE INFLAMMATION [None]
  - INJECTION SITE MASS [None]
  - PAIN [None]
  - SEPSIS [None]
